FAERS Safety Report 7335728-7 (Version None)
Quarter: 2011Q1

REPORT INFORMATION
  Report Type: 
  Country: None (occurrence: None)
  Receive Date: 20110307
  Receipt Date: 20110225
  Transmission Date: 20110831
  Serious: Yes (Hospitalization)
  Sender: FDA-Public Use
  Company Number: B0702557A

PATIENT
  Age: 44 Year
  Sex: Male
  Weight: 64 kg

DRUGS (4)
  1. KIVEXA [Suspect]
     Indication: HIV INFECTION
     Route: 065
     Dates: start: 20100525, end: 20100922
  2. NORVIR [Concomitant]
     Indication: HIV INFECTION
     Route: 065
     Dates: start: 20100525, end: 20101015
  3. PREZISTA [Concomitant]
     Indication: HIV INFECTION
     Route: 065
     Dates: start: 20100525, end: 20101015
  4. LORAZEPAM [Concomitant]
     Route: 065

REACTIONS (1)
  - MYOCARDIAL INFARCTION [None]
